FAERS Safety Report 9576039 (Version 1)
Quarter: 2013Q4

REPORT INFORMATION
  Report Type: Spontaneous
  Country: US (occurrence: US)
  Receive Date: 20131001
  Receipt Date: 20131001
  Transmission Date: 20140711
  Serious: No
  Sender: FDA-Public Use
  Company Number: US-AMGEN-USASP2013000976

PATIENT
  Sex: Female
  Weight: 63.49 kg

DRUGS (6)
  1. ENBREL [Suspect]
     Indication: PSORIASIS
     Dosage: 50 MG, ONE INJECTION AS DIRECTED 72-96 HOURS APART
  2. ASPIRIN [Concomitant]
     Dosage: 81 MG, UNK
  3. IBUPROFEN [Concomitant]
     Dosage: 200 MG, UNK
  4. VANOS [Concomitant]
     Dosage: 0.1 %, UNK
  5. FLUOCINONIDE [Concomitant]
     Dosage: 0.05 %, UNK
  6. CLOBEX                             /00012002/ [Concomitant]
     Dosage: 0.05 %, UNK

REACTIONS (1)
  - Nasopharyngitis [Recovered/Resolved]
